FAERS Safety Report 5946772-6 (Version None)
Quarter: 2008Q4

REPORT INFORMATION
  Report Type: 
  Country: None (occurrence: None)
  Receive Date: 20081110
  Receipt Date: 20081029
  Transmission Date: 20090506
  Serious: Yes (Other)
  Sender: FDA-Public Use
  Company Number: TW-MERCK-0811USA00804

PATIENT

DRUGS (2)
  1. PEPCID [Suspect]
     Route: 041
  2. PEPCID [Suspect]
     Route: 041

REACTIONS (3)
  - DIVERTICULUM INTESTINAL [None]
  - HYPOVOLAEMIC SHOCK [None]
  - SMALL INTESTINAL HAEMORRHAGE [None]
